FAERS Safety Report 16213703 (Version 1)
Quarter: 2019Q2

REPORT INFORMATION
  Report Type: Spontaneous
  Country: GR (occurrence: GR)
  Receive Date: 20190418
  Receipt Date: 20190418
  Transmission Date: 20190711
  Serious: Yes (Hospitalization, Other)
  Sender: FDA-Public Use
  Company Number: GR-ASTRAZENECA-2019SE54211

PATIENT
  Age: 53 Year
  Sex: Female
  Weight: 84 kg

DRUGS (5)
  1. XULTOPHY 100/3.6 [Concomitant]
     Active Substance: INSULIN DEGLUDEC\LIRAGLUTIDE
     Indication: TYPE 2 DIABETES MELLITUS
     Dosage: 22 IU
     Route: 058
     Dates: start: 20170719
  2. TRINOMIA [ASPIRIN\ATORVASTATIN CALCIUM\RAMIPRIL] [Concomitant]
     Active Substance: ASPIRIN\ATORVASTATIN CALCIUM\RAMIPRIL
     Indication: TYPE IIA HYPERLIPIDAEMIA
     Dosage: (100+20+2,5) MG
     Route: 048
     Dates: start: 20180417
  3. XIGDUO XR [Suspect]
     Active Substance: DAPAGLIFLOZIN PROPANEDIOL\METFORMIN HYDROCHLORIDE
     Indication: TYPE 2 DIABETES MELLITUS
     Dosage: 5 MG+ 1000 MG, TWO TIMES A DAY
     Route: 048
     Dates: start: 20170719, end: 20190327
  4. TRINOMIA [ASPIRIN\ATORVASTATIN CALCIUM\RAMIPRIL] [Concomitant]
     Active Substance: ASPIRIN\ATORVASTATIN CALCIUM\RAMIPRIL
     Indication: HYPERLIPIDAEMIA
     Dosage: (100+20+2,5) MG
     Route: 048
     Dates: start: 20180417
  5. TRINOMIA [ASPIRIN\ATORVASTATIN CALCIUM\RAMIPRIL] [Concomitant]
     Active Substance: ASPIRIN\ATORVASTATIN CALCIUM\RAMIPRIL
     Indication: ESSENTIAL HYPERTENSION
     Dosage: (100+20+2,5) MG
     Route: 048
     Dates: start: 20180417

REACTIONS (5)
  - Pyelonephritis [Unknown]
  - Treatment noncompliance [Unknown]
  - Renal impairment [Unknown]
  - Diabetes mellitus inadequate control [Unknown]
  - Acute kidney injury [Recovering/Resolving]

NARRATIVE: CASE EVENT DATE: 20190327
